FAERS Safety Report 5267058-1 (Version None)
Quarter: 2007Q1

REPORT INFORMATION
  Report Type: 
  Country: None (occurrence: None)
  Receive Date: 20061213
  Receipt Date: 20030211
  Transmission Date: 20070707
  Serious: Yes (Death, Hospitalization)
  Sender: FDA-Public Use
  Company Number: 2003UW00627

PATIENT
  Age: 79 Year
  Sex: Female

DRUGS (1)
  1. NOLVADEX [Suspect]
     Indication: BREAST CANCER
     Dosage: 10 MG BID PO
     Route: 048

REACTIONS (1)
  - BONE NEOPLASM MALIGNANT [None]
